FAERS Safety Report 4754882-4 (Version None)
Quarter: 2005Q3

REPORT INFORMATION
  Report Type: 
  Country: None (occurrence: None)
  Receive Date: 20050829
  Receipt Date: 20050309
  Transmission Date: 20060218
  Serious: Yes (Hospitalization, Disabling)
  Sender: FDA-Public Use
  Company Number: US-MERCK-0503USA02127

PATIENT
  Age: 43 Year
  Sex: Male
  Weight: 86 kg

DRUGS (10)
  1. ASPIRIN [Concomitant]
     Route: 065
  2. VIOXX [Suspect]
     Indication: BACK PAIN
     Route: 048
     Dates: start: 20000321, end: 20041006
  3. VIOXX [Suspect]
     Route: 048
     Dates: start: 20000119, end: 20000321
  4. VIOXX [Suspect]
     Route: 048
     Dates: start: 20020101, end: 20041006
  5. HYZAAR [Concomitant]
     Route: 065
     Dates: start: 20020501, end: 20030101
  6. VICODIN [Concomitant]
     Route: 065
     Dates: start: 20020101
  7. HYDROCODONE BITARTRATE + ACETAMINOPHEN [Concomitant]
     Route: 065
     Dates: start: 20020101
  8. MOTRIN [Concomitant]
     Route: 065
     Dates: start: 20020501, end: 20020701
  9. TYLENOL [Concomitant]
     Route: 065
     Dates: start: 20020506, end: 20020516
  10. CRESTOR [Concomitant]
     Route: 065
     Dates: start: 20020101

REACTIONS (14)
  - BLINDNESS TRANSIENT [None]
  - BLOOD CHOLESTEROL INCREASED [None]
  - CARPAL TUNNEL SYNDROME [None]
  - CEREBROVASCULAR ACCIDENT [None]
  - CERVICOBRACHIAL SYNDROME [None]
  - DRUG INEFFECTIVE [None]
  - EMBOLIC CEREBRAL INFARCTION [None]
  - HEADACHE [None]
  - HEMIPARESIS [None]
  - HYPERTENSION [None]
  - OSTEOARTHRITIS [None]
  - SPINAL OSTEOARTHRITIS [None]
  - TRANSIENT ISCHAEMIC ATTACK [None]
  - VISUAL DISTURBANCE [None]
